FAERS Safety Report 14000169 (Version 1)
Quarter: 2017Q3

REPORT INFORMATION
  Report Type: Spontaneous
  Country: US (occurrence: US)
  Receive Date: 20170922
  Receipt Date: 20170922
  Transmission Date: 20171128
  Serious: No
  Sender: FDA-Public Use
  Company Number: US-BAYER-2017-181044

PATIENT
  Age: 44 Year
  Sex: Female
  Weight: 58 kg

DRUGS (2)
  1. MIRALAX [Suspect]
     Active Substance: POLYETHYLENE GLYCOL 3350
     Indication: COLONOSCOPY
     Dosage: 238 G, UNK
     Route: 048
  2. DULCOLAX PICOSULFAT [Suspect]
     Active Substance: SODIUM PICOSULFATE
     Dosage: 2 DF, UNK

REACTIONS (3)
  - Off label use [Unknown]
  - Product use in unapproved indication [Unknown]
  - Inappropriate prescribing [None]
